FAERS Safety Report 18254221 (Version 2)
Quarter: 2025Q3

REPORT INFORMATION
  Report Type: Spontaneous
  Country: EU (occurrence: EU)
  Receive Date: 20200910
  Receipt Date: 20250730
  Transmission Date: 20251020
  Serious: Yes (Hospitalization, Other)
  Sender: MYLAN
  Company Number: EU-BRISTOL-MYERS SQUIBB COMPANY-BMS-2020-065966

PATIENT
  Age: 87 Year
  Sex: Female
  Weight: 60 kg

DRUGS (21)
  1. ALLOPURINOL [Interacting]
     Active Substance: ALLOPURINOL
     Indication: Product used for unknown indication
     Dosage: 100 MILLIGRAM, QD
  2. TORSEMIDE [Interacting]
     Active Substance: TORSEMIDE
     Indication: Product used for unknown indication
     Dosage: 20 MILLIGRAM, BID(20 MG 2-1-0-0)
  3. MIRTAZAPINE [Interacting]
     Active Substance: MIRTAZAPINE
     Indication: Sleep disorder
     Dosage: 15 MILLIGRAM, QD
  4. BISOPROLOL [Interacting]
     Active Substance: BISOPROLOL
     Indication: Product used for unknown indication
  5. XIPAMIDE [Interacting]
     Active Substance: XIPAMIDE
     Indication: Product used for unknown indication
     Dosage: 40 MILLIGRAM, QD
  6. PREGABALIN [Interacting]
     Active Substance: PREGABALIN
     Indication: Neuropathy peripheral
     Dosage: 25 MILLIGRAM, QD(25 MG, 0-0-1-0)
  7. ATORVASTATIN [Interacting]
     Active Substance: ATORVASTATIN
     Indication: Product used for unknown indication
     Dosage: 20 MILLIGRAM, QD
  8. GENTAMICIN [Interacting]
     Active Substance: GENTAMICIN
     Indication: Product used for unknown indication
     Dosage: UNK UNK, QD
  9. ELIQUIS [Interacting]
     Active Substance: APIXABAN
     Indication: Cerebrovascular accident prophylaxis
     Dosage: 5 MILLIGRAM, QD(2.5 MILLIGRAM, BID)
     Dates: start: 2018
  10. ELIQUIS [Interacting]
     Active Substance: APIXABAN
     Indication: Atrial fibrillation
  11. INSULIN LISPRO [Interacting]
     Active Substance: INSULIN LISPRO
     Indication: Product used for unknown indication
  12. NOVALGIN (METAMIZOLE SODIUM) [Interacting]
     Active Substance: METAMIZOLE SODIUM
     Indication: Product used for unknown indication
  13. INSULIN NOS [Interacting]
     Active Substance: INSULIN NOS
     Indication: Product used for unknown indication
  14. MOVICOL [Interacting]
     Active Substance: POLYETHYLENE GLYCOL 3350\POTASSIUM CHLORIDE\SODIUM BICARBONATE\SODIUM CHLORIDE
     Indication: Constipation
  15. NITROLINGUAL [Interacting]
     Active Substance: NITROGLYCERIN
     Indication: Product used for unknown indication
  16. CHOLECALCIFEROL [Interacting]
     Active Substance: CHOLECALCIFEROL
     Indication: Product used for unknown indication
     Dosage: UNK UNK, QW(20000 1 X 1 WEEKLY   )
  17. COD LIVER OIL\UREA\ZINC OXIDE [Interacting]
     Active Substance: COD LIVER OIL\UREA\ZINC OXIDE
     Indication: Product used for unknown indication
  18. PANTOPRAZOLE SODIUM [Interacting]
     Active Substance: PANTOPRAZOLE SODIUM
     Indication: Product used for unknown indication
     Dosage: 20 MILLIGRAM, QD
  19. POTASSIUM CHLORIDE [Interacting]
     Active Substance: POTASSIUM CHLORIDE
     Indication: Product used for unknown indication
     Dosage: UNK UNK, QD
  20. HYALURONATE SODIUM [Interacting]
     Active Substance: HYALURONATE SODIUM
     Indication: Dry eye
     Dosage: UNK UNK, TID
  21. BENFOTIAMINE [Interacting]
     Active Substance: BENFOTIAMINE
     Indication: Neuropathy peripheral
     Dosage: UNK UNK, QD

REACTIONS (2)
  - Gastrointestinal haemorrhage [Unknown]
  - Drug interaction [Unknown]
